FAERS Safety Report 5883693-1 (Version None)
Quarter: 2008Q3

REPORT INFORMATION
  Report Type: 
  Country: None (occurrence: None)
  Receive Date: 20080910
  Receipt Date: 20080828
  Transmission Date: 20090109
  Serious: No
  Sender: FDA-Public Use
  Company Number: 02100-JPN-05-0037

PATIENT
  Age: 73 Year
  Sex: Male
  Weight: 53 kg

DRUGS (11)
  1. PLETAL [Suspect]
     Indication: CEREBRAL INFARCTION
     Dates: start: 20040129, end: 20041006
  2. PLETAL [Suspect]
     Indication: CEREBRAL INFARCTION
     Dates: start: 20040129, end: 20041006
  3. UBRETID (DISTIGMINE BROMIDE) [Concomitant]
  4. FLIVAS (NAFTOPIDIL) [Concomitant]
  5. SELTOUCH (FELBINAC) [Concomitant]
  6. SEDES (CAFFINE, AMINOPHENAZONE, PHENACETIN,CYCLOBARBITAL AMINOPHENAZON [Concomitant]
  7. SEIROGAN                                                 (GLYCYRRHIZA [Concomitant]
  8. SEDIEL (TANDOSPIRONE CITRATE) [Concomitant]
  9. AMANTADINE HCL [Concomitant]
  10. MEBALOTIN       (PRAVASTATIN SODIUM) [Concomitant]
  11. ANTEBATE    (BETAMETHASONE BUTYRATE PROTINATE) [Concomitant]

REACTIONS (3)
  - DRUG DOSE OMISSION [None]
  - HAEMORRHAGE SUBCUTANEOUS [None]
  - PROSTATE CANCER [None]
